FAERS Safety Report 19948047 (Version 2)
Quarter: 2021Q4

REPORT INFORMATION
  Report Type: Spontaneous
  Country: LV (occurrence: LV)
  Receive Date: 20211013
  Receipt Date: 20211019
  Transmission Date: 20220303
  Serious: Yes (Other)
  Sender: FDA-Public Use
  Company Number: LV-KOREA IPSEN PHARMA-2021-24599

PATIENT
  Age: 18 Year
  Sex: Female
  Weight: 78 kg

DRUGS (4)
  1. LANREOTIDE ACETATE [Suspect]
     Active Substance: LANREOTIDE ACETATE
     Indication: Acromegaly
     Dosage: 120 MG EVERY 4 WEEKS
     Route: 058
     Dates: start: 2009, end: 2009
  2. LANREOTIDE ACETATE [Suspect]
     Active Substance: LANREOTIDE ACETATE
     Dosage: 120 MG EVERY 3 WEEKS
     Route: 058
     Dates: start: 2009
  3. CABERGOLINI [Concomitant]
     Dosage: 2 TABLETS TWICE A WEEK (STRENGTH: 0.5 MG)
  4. LEVOTHYROXINI [Concomitant]
     Dosage: 125 MCG X1

REACTIONS (7)
  - Abnormal organ growth [Unknown]
  - Abnormal organ growth [Unknown]
  - Insulin-like growth factor increased [Unknown]
  - Insulin-like growth factor increased [Unknown]
  - Sensory disturbance [Unknown]
  - Oedema [Unknown]
  - Off label use [Unknown]

NARRATIVE: CASE EVENT DATE: 20090101
